FAERS Safety Report 11992537 (Version 1)
Quarter: 2016Q1

REPORT INFORMATION
  Report Type: Spontaneous
  Country: US (occurrence: None)
  Receive Date: 20160202
  Receipt Date: 20160202
  Transmission Date: 20160526
  Serious: No
  Sender: FDA-Public Use
  Company Number: None

PATIENT
  Age: 45 Year
  Sex: Male
  Weight: 99.79 kg

DRUGS (17)
  1. TURMERIC [Concomitant]
     Active Substance: TURMERIC
  2. AIRBORNE EFFEVESCENT [Concomitant]
  3. FINASTERIDE 5MG [Suspect]
     Active Substance: FINASTERIDE
     Indication: ORCHITIS NONINFECTIVE
     Dosage: 1 TABLET DAILY
     Route: 048
     Dates: start: 20160126, end: 20160131
  4. FINASTERIDE. [Concomitant]
     Active Substance: FINASTERIDE
  5. TUMS [Concomitant]
     Active Substance: CALCIUM CARBONATE
  6. ALPRAZOLAM. [Concomitant]
     Active Substance: ALPRAZOLAM
  7. FINASTERIDE 5MG [Suspect]
     Active Substance: FINASTERIDE
     Indication: BENIGN PROSTATIC HYPERPLASIA
     Dosage: 1 TABLET DAILY
     Route: 048
     Dates: start: 20160126, end: 20160131
  8. IBUPROFEN. [Concomitant]
     Active Substance: IBUPROFEN
  9. VITAMIN D3 [Concomitant]
     Active Substance: CHOLECALCIFEROL
  10. GLUCOSAMINE - CHONDROITIN [Concomitant]
  11. PEPPERMINT OIL [Concomitant]
     Active Substance: PEPPERMINT OIL
  12. DIPHENHYDRAMINE. [Concomitant]
     Active Substance: DIPHENHYDRAMINE
  13. GARLIC. [Concomitant]
     Active Substance: GARLIC
  14. CINNAMON. [Concomitant]
     Active Substance: CINNAMON
  15. PROBIOTICS [Concomitant]
     Active Substance: PROBIOTICS NOS
  16. GINGER. [Concomitant]
     Active Substance: GINGER
  17. FISH OIL [Concomitant]
     Active Substance: FISH OIL

REACTIONS (11)
  - Diarrhoea [None]
  - Tachyphrenia [None]
  - Energy increased [None]
  - Head discomfort [None]
  - Anxiety [None]
  - Sneezing [None]
  - Feeling hot [None]
  - Insomnia [None]
  - Headache [None]
  - Agitation [None]
  - Palpitations [None]

NARRATIVE: CASE EVENT DATE: 20160127
